FAERS Safety Report 18723934 (Version 1)
Quarter: 2021Q1

REPORT INFORMATION
  Report Type: Other
  Country: US (occurrence: US)
  Receive Date: 20210111
  Receipt Date: 20210111
  Transmission Date: 20210419
  Serious: Yes (Other)
  Sender: FDA-Public Use
  Company Number: US-ROCHE-2745929

PATIENT
  Age: 27 Year
  Sex: Female

DRUGS (1)
  1. BEVACIZUMAB. [Suspect]
     Active Substance: BEVACIZUMAB
     Indication: DIABETIC RETINOPATHY
     Route: 050

REACTIONS (8)
  - Nephrotic syndrome [Unknown]
  - Tubulointerstitial nephritis [Unknown]
  - Off label use [Unknown]
  - Intentional product use issue [Unknown]
  - Acute kidney injury [Unknown]
  - Glomerulonephritis proliferative [Unknown]
  - Proteinuria [Unknown]
  - Thrombotic microangiopathy [Unknown]
